FAERS Safety Report 25585661 (Version 1)
Quarter: 2025Q3

REPORT INFORMATION
  Report Type: Spontaneous
  Country: CA (occurrence: CA)
  Receive Date: 20250721
  Receipt Date: 20250721
  Transmission Date: 20251021
  Serious: Yes (Hospitalization, Other)
  Sender: PFIZER
  Company Number: CA-PFIZER INC-202500145510

PATIENT
  Age: 86 Year
  Sex: Male

DRUGS (21)
  1. RUXIENCE [Suspect]
     Active Substance: RITUXIMAB-PVVR
     Indication: Chemotherapy
     Route: 042
  2. ALLOPURINOL [Concomitant]
     Active Substance: ALLOPURINOL
  3. ASPIRIN [Concomitant]
     Active Substance: ASPIRIN
     Route: 065
  4. ATENOLOL [Concomitant]
     Active Substance: ATENOLOL
  5. DIMENHYDRINATE [Concomitant]
     Active Substance: DIMENHYDRINATE
  6. EPOETIN ALFA [Concomitant]
     Active Substance: ERYTHROPOIETIN
  7. FLUCONAZOLE [Concomitant]
     Active Substance: FLUCONAZOLE
  8. FOLIC ACID [Concomitant]
     Active Substance: FOLIC ACID
  9. FUSIDIC ACID [Concomitant]
     Active Substance: FUSIDIC ACID
  10. ALGINIC ACID\ALUMINUM HYDROXIDE\MAGNESIUM TRISILICATE\SODIUM BICARBONA [Concomitant]
     Active Substance: ALGINIC ACID\ALUMINUM HYDROXIDE\MAGNESIUM TRISILICATE\SODIUM BICARBONATE
  11. FERRIC POLYSACCHARIDE COMPLEX [Concomitant]
     Active Substance: FERRIC POLYSACCHARIDE COMPLEX
  12. MIRABEGRON [Concomitant]
     Active Substance: MIRABEGRON
  13. NYSTATIN [Concomitant]
     Active Substance: NYSTATIN
  14. PANTOPRAZOLE [Concomitant]
     Active Substance: PANTOPRAZOLE
  15. POLYETHYLENE GLYCOLS [Concomitant]
     Active Substance: POLYETHYLENE GLYCOLS
  16. PREDNISONE [Concomitant]
     Active Substance: PREDNISONE
  17. ROSUVASTATIN [Concomitant]
     Active Substance: ROSUVASTATIN
     Route: 058
  18. SYSTANE LUBRICANT [Concomitant]
     Active Substance: POLYETHYLENE GLYCOL 400\PROPYLENE GLYCOL
  19. TAMSULOSIN [Concomitant]
     Active Substance: TAMSULOSIN
  20. BETAMETHASONE\CALCIPOTRIENE [Concomitant]
     Active Substance: BETAMETHASONE\CALCIPOTRIENE
  21. VITAMIN C [Concomitant]
     Active Substance: ASCORBIC ACID

REACTIONS (2)
  - Anaphylactic reaction [Unknown]
  - Hypotension [Unknown]
